FAERS Safety Report 25610752 (Version 4)
Quarter: 2025Q4

REPORT INFORMATION
  Report Type: Spontaneous
  Country: US (occurrence: US)
  Receive Date: 20250728
  Receipt Date: 20251022
  Transmission Date: 20260118
  Serious: Yes (Other)
  Sender: SANOFI AVENTIS
  Company Number: US-SA-2025SA215131

PATIENT
  Age: 49 Year
  Sex: Female

DRUGS (2)
  1. DUPIXENT [Suspect]
     Active Substance: DUPILUMAB
     Indication: Asthma
     Dosage: 300 MG, QOW
     Route: 058
     Dates: start: 202505
  2. PREDNISONE [Concomitant]
     Active Substance: PREDNISONE

REACTIONS (7)
  - Bacterial abdominal infection [Unknown]
  - Sleep disorder [Unknown]
  - Lacrimation increased [Recovering/Resolving]
  - Vision blurred [Recovering/Resolving]
  - Dry eye [Recovering/Resolving]
  - Asthma [Unknown]
  - Therapeutic response decreased [Unknown]

NARRATIVE: CASE EVENT DATE: 20250101
